FAERS Safety Report 22851705 (Version 3)
Quarter: 2025Q1

REPORT INFORMATION
  Report Type: Spontaneous
  Country: FI (occurrence: FI)
  Receive Date: 20230823
  Receipt Date: 20250226
  Transmission Date: 20250408
  Serious: Yes (Other)
  Sender: JOHNSON AND JOHNSON
  Company Number: FI-JNJFOC-20230835957

PATIENT
  Age: 56 Year
  Sex: Female

DRUGS (9)
  1. SPRAVATO [Suspect]
     Active Substance: ESKETAMINE
     Indication: Depression
     Route: 045
     Dates: start: 20230515
  2. SPRAVATO [Suspect]
     Active Substance: ESKETAMINE
     Route: 045
  3. SPRAVATO [Suspect]
     Active Substance: ESKETAMINE
     Route: 045
  4. VENLAFAXINE [Concomitant]
     Active Substance: VENLAFAXINE HYDROCHLORIDE
     Route: 065
  5. DIAZEPAM [Concomitant]
     Active Substance: DIAZEPAM
     Route: 065
  6. DORMIX [Concomitant]
     Route: 065
  7. LEVOMEPROMAZINE [Concomitant]
     Active Substance: LEVOMEPROMAZINE
     Route: 065
  8. MELATONIN [Concomitant]
     Active Substance: MELATONIN
     Route: 065
  9. TENOX [TEMAZEPAM] [Concomitant]
     Indication: Insomnia
     Route: 065

REACTIONS (9)
  - Respiratory depression [Recovered/Resolved]
  - Mental impairment [Recovered/Resolved]
  - Dysphagia [Recovered/Resolved]
  - Sedation [Recovered/Resolved]
  - Panic attack [Recovered/Resolved]
  - Diplopia [Recovered/Resolved]
  - Feeling abnormal [Recovered/Resolved]
  - Nausea [Recovered/Resolved]
  - Vomiting [Recovered/Resolved]

NARRATIVE: CASE EVENT DATE: 20230101
